FAERS Safety Report 18967466 (Version 1)
Quarter: 2021Q1

REPORT INFORMATION
  Report Type: Spontaneous
  Country: None (occurrence: US)
  Receive Date: 20210303
  Receipt Date: 20210303
  Transmission Date: 20210420
  Serious: No
  Sender: FDA-Public Use
  Company Number: US-ARMSTRONG PHARMACEUTICALS, INC.-2107561

PATIENT
  Sex: Female

DRUGS (1)
  1. PRIMATENE MIST [Suspect]
     Active Substance: EPINEPHRINE
     Indication: DYSPNOEA
     Route: 055

REACTIONS (3)
  - Drug ineffective [Unknown]
  - Condition aggravated [Unknown]
  - Feeling abnormal [Unknown]

NARRATIVE: CASE EVENT DATE: 20201218
